FAERS Safety Report 8235155-4 (Version None)
Quarter: 2012Q1

REPORT INFORMATION
  Report Type: 
  Country: None (occurrence: None)
  Receive Date: 20120326
  Receipt Date: 20120326
  Transmission Date: 20120608
  Serious: Yes (Death)
  Sender: FDA-Public Use
  Company Number: JP-EISAI INC-E2020-10543-CLI-JP

PATIENT
  Sex: Male

DRUGS (9)
  1. MAGNESIUM OXIDE [Concomitant]
     Indication: CONSTIPATION
     Route: 048
     Dates: start: 20080329, end: 20111219
  2. ZOLPIDEM [Concomitant]
     Indication: INSOMNIA
     Route: 048
     Dates: start: 20080329, end: 20111219
  3. ALLEGRA [Concomitant]
     Route: 048
     Dates: start: 20110709, end: 20111217
  4. POLYFUL [Concomitant]
     Indication: CONSTIPATION
     Route: 048
     Dates: start: 20080329, end: 20111203
  5. ARICEPT [Suspect]
     Indication: DEMENTIA ALZHEIMER'S TYPE
     Route: 048
     Dates: start: 20100911, end: 20111219
  6. PLETAL [Concomitant]
     Route: 048
     Dates: start: 20080329, end: 20111219
  7. EPHEDRA TEAS [Concomitant]
     Route: 048
     Dates: start: 20110528, end: 20111219
  8. URGENT [Concomitant]
     Indication: NEUROGENIC BLADDER
     Route: 048
     Dates: start: 20080329, end: 20111219
  9. MEDETAX [Concomitant]
     Indication: INSOMNIA
     Route: 048
     Dates: start: 20080329, end: 20111219

REACTIONS (1)
  - CARDIAC FAILURE [None]
